FAERS Safety Report 6112311-2 (Version None)
Quarter: 2009Q1

REPORT INFORMATION
  Report Type: 
  Country: None (occurrence: None)
  Receive Date: 20090311
  Receipt Date: 20090311
  Transmission Date: 20090719
  Serious: Yes (Other)
  Sender: FDA-Public Use
  Company Number: None

PATIENT
  Sex: Female
  Weight: 63.5036 kg

DRUGS (1)
  1. ESTRADIOL [Suspect]
     Indication: HYSTERECTOMY
     Dosage: 2 MG 1 DAILY ORALLY
     Route: 048
     Dates: start: 20080303

REACTIONS (2)
  - PRODUCT QUALITY ISSUE [None]
  - SWOLLEN TONGUE [None]
